FAERS Safety Report 10520556 (Version 1)
Quarter: 2014Q4

REPORT INFORMATION
  Report Type: Spontaneous
  Country: JP (occurrence: JP)
  Receive Date: 20141015
  Receipt Date: 20141015
  Transmission Date: 20150528
  Serious: Yes (Other)
  Sender: FDA-Public Use
  Company Number: JP-PFIZER INC-2014278916

PATIENT
  Age: 78 Year
  Sex: Female

DRUGS (2)
  1. LIPITOR [Suspect]
     Active Substance: ATORVASTATIN CALCIUM
     Dosage: 15 MG, EVERY OTHER DAY, (5 MG IN THE MORNING, AT NOON, AND IN THE EVENING, THREE TIME A DAY)
     Route: 048
  2. LIPITOR [Suspect]
     Active Substance: ATORVASTATIN CALCIUM
     Dosage: 15 MG, DAILY
     Route: 048

REACTIONS (4)
  - Cognitive disorder [Unknown]
  - Presbyopia [Unknown]
  - Intentional product misuse [Unknown]
  - Glaucoma [Unknown]
